FAERS Safety Report 18115027 (Version 3)
Quarter: 2020Q3

REPORT INFORMATION
  Report Type: Report from Study
  Country: FR (occurrence: FR)
  Receive Date: 20200805
  Receipt Date: 20200908
  Transmission Date: 20201103
  Serious: Yes (Hospitalization)
  Sender: FDA-Public Use
  Company Number: NVSC2020FR216078

PATIENT
  Age: 51 Year
  Sex: Male
  Weight: 110 kg

DRUGS (2)
  1. BYL719 [Suspect]
     Active Substance: ALPELISIB
     Indication: MENINGIOMA MALIGNANT
     Dosage: 100 MG
     Route: 048
     Dates: start: 20200416, end: 20200727
  2. TRAMETINIB [Suspect]
     Active Substance: TRAMETINIB
     Indication: MENINGIOMA MALIGNANT
     Dosage: 1.5 MG
     Route: 048
     Dates: start: 20200416, end: 20200727

REACTIONS (1)
  - Hyperlipasaemia [Recovered/Resolved with Sequelae]

NARRATIVE: CASE EVENT DATE: 20200727
